FAERS Safety Report 6613290-1 (Version None)
Quarter: 2010Q1

REPORT INFORMATION
  Report Type: 
  Country: None (occurrence: None)
  Receive Date: 20100304
  Receipt Date: 20100225
  Transmission Date: 20100710
  Serious: Yes (Hospitalization)
  Sender: FDA-Public Use
  Company Number: FI-ELI_LILLY_AND_COMPANY-FI200912003879

PATIENT
  Sex: Female
  Weight: 72 kg

DRUGS (8)
  1. PEMETREXED [Suspect]
     Indication: NON-SMALL CELL LUNG CANCER
     Dosage: 500 MG/M2, ONCE EVERY 21 DAYS
     Dates: start: 20091119
  2. CISPLATIN [Suspect]
     Indication: NON-SMALL CELL LUNG CANCER
     Dosage: 75 MG/M2, ONCE EVERY 21 DAYS
     Route: 042
     Dates: start: 20091119
  3. FOLIC ACID [Concomitant]
     Indication: PROPHYLAXIS
     Dosage: UNK, UNK
     Dates: start: 20091111
  4. VITAMIN B-12 [Concomitant]
     Indication: PROPHYLAXIS
     Dates: start: 20091111, end: 20091111
  5. DEXAMETHASONE [Concomitant]
     Indication: PROPHYLAXIS
     Dosage: UNK, UNK
     Dates: start: 20091118
  6. OXYCONTIN [Concomitant]
     Indication: PAIN
     Dosage: 10 MG, 2/D
     Dates: start: 20091119
  7. PANADOL [Concomitant]
     Indication: PAIN
     Dosage: 1 G, 3/D
     Dates: start: 20091119
  8. LEVOLAC [Concomitant]
     Dosage: 10 ML, 2/D
     Dates: start: 20091119

REACTIONS (2)
  - C-REACTIVE PROTEIN INCREASED [None]
  - INFECTION [None]
